FAERS Safety Report 6168473-4 (Version None)
Quarter: 2009Q2

REPORT INFORMATION
  Report Type: 
  Country: None (occurrence: None)
  Receive Date: 20090427
  Receipt Date: 20090420
  Transmission Date: 20091009
  Serious: Yes (Other)
  Sender: FDA-Public Use
  Company Number: A0779414A

PATIENT
  Age: 8 Year
  Sex: Male

DRUGS (8)
  1. LAMOTRIGINE [Suspect]
     Dosage: 100MG THREE TIMES PER DAY
     Route: 048
  2. LAMICTAL [Suspect]
     Dosage: 100MG THREE TIMES PER DAY
     Route: 048
     Dates: start: 19990101
  3. COENZYME Q10 [Concomitant]
  4. KEPPRA [Concomitant]
  5. LEVOCARNITINE [Concomitant]
  6. MULTI-VITAMIN [Concomitant]
  7. ANTIBIOTICS [Concomitant]
  8. UNKNOWN [Concomitant]

REACTIONS (4)
  - CONVULSION [None]
  - DRUG INEFFECTIVE [None]
  - PYREXIA [None]
  - UNEVALUABLE EVENT [None]
